FAERS Safety Report 8896665 (Version 1)
Quarter: 2012Q4

REPORT INFORMATION
  Report Type: 
  Country: US (occurrence: US)
  Receive Date: 20121108
  Receipt Date: 20121108
  Transmission Date: 20130627
  Serious: No
  Sender: FDA-Public Use
  Company Number: US-AMGEN-USASP2012028209

PATIENT
  Age: 66 Year
  Sex: Male
  Weight: 104.31 kg

DRUGS (4)
  1. ENBREL [Suspect]
     Indication: PRODUCT USED FOR UNKNOWN INDICATION
     Dosage: 50 mg, qwk
     Route: 058
  2. SAVELLA [Concomitant]
     Dosage: 12.5 mg, UNK
  3. PREVACID [Concomitant]
     Dosage: 15 mg, UNK
  4. GLUCOSAMIN PLUS CHONDROITIN [Concomitant]
     Dosage: UNK

REACTIONS (6)
  - Dysuria [Unknown]
  - Blood testosterone decreased [Unknown]
  - Myalgia [Unknown]
  - Bone pain [Unknown]
  - Musculoskeletal stiffness [Unknown]
  - Asthenia [Unknown]
